FAERS Safety Report 16622376 (Version 1)
Quarter: 2019Q3

REPORT INFORMATION
  Report Type: Spontaneous
  Country: PK (occurrence: PK)
  Receive Date: 20190724
  Receipt Date: 20190724
  Transmission Date: 20191004
  Serious: Yes (Other)
  Sender: FDA-Public Use
  Company Number: PK-NOVAST LABORATORIES LTD.-2019NOV000013

PATIENT
  Age: 22 Year
  Sex: Female

DRUGS (1)
  1. METFORMIN [Suspect]
     Active Substance: METFORMIN HYDROCHLORIDE
     Indication: POLYCYSTIC OVARIES
     Dosage: 500 MILLIGRAM, BID
     Route: 048

REACTIONS (9)
  - Cluster headache [Recovering/Resolving]
  - Palpitations [Recovering/Resolving]
  - Therapeutic product cross-reactivity [Recovering/Resolving]
  - Breast tenderness [Recovering/Resolving]
  - Hyperuricaemia [Recovering/Resolving]
  - Arthralgia [Recovering/Resolving]
  - Pain in extremity [Recovering/Resolving]
  - Mood altered [Recovering/Resolving]
  - Axillary pain [Recovering/Resolving]
